FAERS Safety Report 21738807 (Version 2)
Quarter: 2023Q1

REPORT INFORMATION
  Report Type: Report from Study
  Country: US (occurrence: US)
  Receive Date: 20221216
  Receipt Date: 20230103
  Transmission Date: 20230418
  Serious: No
  Sender: FDA-Public Use
  Company Number: US-ABBVIE-4236934

PATIENT
  Age: 17 Year
  Sex: Female
  Weight: 56 kg

DRUGS (9)
  1. HUMIRA [Suspect]
     Active Substance: ADALIMUMAB
     Indication: Crohn^s disease
     Route: 058
     Dates: start: 20131206, end: 20190731
  2. HUMIRA [Suspect]
     Active Substance: ADALIMUMAB
     Route: 058
     Dates: start: 20190731, end: 20201202
  3. HUMIRA [Suspect]
     Active Substance: ADALIMUMAB
     Route: 058
     Dates: start: 20201202, end: 20210803
  4. HUMIRA [Suspect]
     Active Substance: ADALIMUMAB
     Route: 058
     Dates: start: 20210803, end: 202110
  5. HUMIRA [Suspect]
     Active Substance: ADALIMUMAB
     Route: 058
     Dates: start: 202110, end: 20221230
  6. HUMIRA [Suspect]
     Active Substance: ADALIMUMAB
     Dosage: ONE TIME
     Route: 058
     Dates: start: 20221230, end: 20221230
  7. HUMIRA [Suspect]
     Active Substance: ADALIMUMAB
     Route: 058
     Dates: start: 20230106
  8. METHOTREXATE [Suspect]
     Active Substance: METHOTREXATE
     Indication: Crohn^s disease
     Route: 048
     Dates: start: 20131205, end: 20181109
  9. CLINDAMYCIN PHOSPHATE [Concomitant]
     Active Substance: CLINDAMYCIN PHOSPHATE
     Indication: Acne
     Route: 061
     Dates: start: 20201012, end: 20220308

REACTIONS (1)
  - Staphylococcus test positive [Not Recovered/Not Resolved]

NARRATIVE: CASE EVENT DATE: 20211209
